FAERS Safety Report 15368623 (Version 2)
Quarter: 2018Q3

REPORT INFORMATION
  Report Type: Spontaneous
  Country: NL (occurrence: NL)
  Receive Date: 20180911
  Receipt Date: 20180915
  Transmission Date: 20181010
  Serious: Yes (Other)
  Sender: FDA-Public Use
  Company Number: NL-AUROBINDO-AUR-APL-2018-044834

PATIENT

DRUGS (3)
  1. CLOPIDOGREL [Suspect]
     Active Substance: CLOPIDOGREL BISULFATE
     Dosage: 1 DOSAGE FORM, DAILY
     Route: 065
     Dates: start: 20180810
  2. CLOPIDOGREL [Suspect]
     Active Substance: CLOPIDOGREL BISULFATE
     Indication: TRANSIENT ISCHAEMIC ATTACK
     Dosage: 1 DOSAGE FORM, DAILY
     Route: 065
     Dates: start: 20180814
  3. CLOPIDOGREL [Suspect]
     Active Substance: CLOPIDOGREL BISULFATE
     Dosage: 1 DOSAGE FORM, DAILY
     Route: 065
     Dates: start: 20180813

REACTIONS (8)
  - Headache [Unknown]
  - Dizziness [Unknown]
  - Tongue disorder [Recovering/Resolving]
  - Tongue discolouration [Recovering/Resolving]
  - Dysphagia [Recovering/Resolving]
  - Paraesthesia oral [Recovering/Resolving]
  - Hypersensitivity [Unknown]
  - Dyspnoea [Unknown]

NARRATIVE: CASE EVENT DATE: 20180814
